FAERS Safety Report 14320966 (Version 3)
Quarter: 2018Q2

REPORT INFORMATION
  Report Type: Report from Study
  Country: None (occurrence: US)
  Receive Date: 20171223
  Receipt Date: 20180509
  Transmission Date: 20180711
  Serious: Yes (Other)
  Sender: FDA-Public Use
  Company Number: US-ABBVIE-17K-163-2007575-00

PATIENT
  Age: 61 Year
  Sex: Female

DRUGS (2)
  1. HUMIRA [Suspect]
     Active Substance: ADALIMUMAB
     Indication: HIDRADENITIS
     Route: 058
     Dates: end: 201708
  2. HUMIRA [Suspect]
     Active Substance: ADALIMUMAB
     Route: 058
     Dates: start: 201803

REACTIONS (9)
  - Drug effect decreased [Unknown]
  - Gait disturbance [Unknown]
  - Procedural pain [Recovering/Resolving]
  - Anorectal operation [Recovering/Resolving]
  - Tendon rupture [Unknown]
  - Hidradenitis [Not Recovered/Not Resolved]
  - Skin haemorrhage [Unknown]
  - Fistula [Unknown]
  - Psoriatic arthropathy [Recovering/Resolving]

NARRATIVE: CASE EVENT DATE: 20171117
